FAERS Safety Report 16018550 (Version 1)
Quarter: 2019Q1

REPORT INFORMATION
  Report Type: Spontaneous
  Country: ES (occurrence: ES)
  Receive Date: 20190228
  Receipt Date: 20190228
  Transmission Date: 20190418
  Serious: Yes (Hospitalization)
  Sender: FDA-Public Use
  Company Number: ES-BAYER-2019-036449

PATIENT
  Age: 87 Year
  Sex: Male

DRUGS (3)
  1. RISPERIDONA [Concomitant]
     Active Substance: RISPERIDONE
     Dosage: UNK
  2. PREDNISONA [Concomitant]
     Active Substance: PREDNISONE
     Dosage: UNK
  3. ADIRO 100 MG [Suspect]
     Active Substance: ASPIRIN
     Dosage: 100 MG, QD
     Route: 048
     Dates: start: 2011, end: 20180703

REACTIONS (2)
  - Gastric ulcer [Recovered/Resolved]
  - Upper gastrointestinal haemorrhage [Recovered/Resolved]

NARRATIVE: CASE EVENT DATE: 20180703
